FAERS Safety Report 24348694 (Version 3)
Quarter: 2024Q4

REPORT INFORMATION
  Report Type: Spontaneous
  Country: US (occurrence: US)
  Receive Date: 20240923
  Receipt Date: 20241216
  Transmission Date: 20250115
  Serious: Yes (Other)
  Sender: SANOFI AVENTIS
  Company Number: US-SA-2024SA272116

PATIENT
  Age: 12 Year
  Sex: Female

DRUGS (11)
  1. DUPILUMAB [Suspect]
     Active Substance: DUPILUMAB
     Indication: Asthma
     Dosage: 300 MG, QOW
     Route: 058
     Dates: start: 20230606
  2. DUPILUMAB [Suspect]
     Active Substance: DUPILUMAB
     Indication: Eczema
  3. DULERA [Concomitant]
     Active Substance: FORMOTEROL FUMARATE DIHYDRATE\MOMETASONE FUROATE
     Dosage: 2P UFFS BID
  4. FLONASE [Concomitant]
     Active Substance: FLUTICASONE PROPIONATE
     Dosage: 2 SPRAYS DAILY
     Route: 045
  5. SPIRIVA RESPIMAT [Concomitant]
     Active Substance: TIOTROPIUM BROMIDE
     Dosage: 2 PUFFS ONCE DAILY
  6. MAXALT [Concomitant]
     Active Substance: RIZATRIPTAN BENZOATE
     Indication: Migraine
     Dosage: 1 TAB AS NEEDED
  7. DIAMOX SEQUELS [Concomitant]
     Active Substance: ACETAZOLAMIDE
     Indication: Idiopathic intracranial hypertension
     Dosage: 1 TAB Q AM MG TAB AND 2 TABS AS NEEDED RESTAUTED 9/23/2024 (FIRST 9/2020)
     Dates: start: 20240923
  8. VITAMIN D [Concomitant]
     Active Substance: VITAMIN D NOS
     Dosage: 5000IU ONCE DAILY
  9. ZYRTEC [Concomitant]
     Active Substance: CETIRIZINE HYDROCHLORIDE
     Dosage: 10 MG DAILY
  10. ALBUTEROL [Concomitant]
     Active Substance: ALBUTEROL
  11. PROZAC [Concomitant]
     Active Substance: FLUOXETINE HYDROCHLORIDE
     Dosage: 40 MG ONCE DAILY
     Route: 048

REACTIONS (4)
  - Polycystic ovarian syndrome [Not Recovered/Not Resolved]
  - Loss of personal independence in daily activities [Not Recovered/Not Resolved]
  - Impaired quality of life [Unknown]
  - Drug ineffective [Unknown]

NARRATIVE: CASE EVENT DATE: 20240729
